FAERS Safety Report 7516666-3 (Version None)
Quarter: 2011Q2

REPORT INFORMATION
  Report Type: 
  Country: None (occurrence: None)
  Receive Date: 20110601
  Receipt Date: 20110531
  Transmission Date: 20111010
  Serious: Yes (Hospitalization)
  Sender: FDA-Public Use
  Company Number: DE-ROCHE-780102

PATIENT
  Sex: Female
  Weight: 94 kg

DRUGS (5)
  1. METOPROLOL TARTRATE [Suspect]
     Indication: HYPERTENSION
     Route: 048
     Dates: start: 20100101
  2. DOMINAL FORTE [Concomitant]
     Indication: INSOMNIA
     Route: 048
     Dates: start: 20110527
  3. RIBAVIRIN [Suspect]
     Route: 048
     Dates: start: 20110308
  4. CITALOPRAM HYDROBROMIDE [Concomitant]
     Route: 048
     Dates: start: 20110527
  5. PEGINTERFERON ALFA-2A [Suspect]
     Route: 058
     Dates: start: 20110308

REACTIONS (1)
  - SYNCOPE [None]
